FAERS Safety Report 4632057-7 (Version None)
Quarter: 2005Q2

REPORT INFORMATION
  Report Type: 
  Country: None (occurrence: None)
  Receive Date: 20050331
  Receipt Date: 20040305
  Transmission Date: 20051028
  Serious: Yes (Other)
  Sender: FDA-Public Use
  Company Number: 200411122BCC

PATIENT
  Age: 85 Year
  Sex: Female
  Weight: 72.5755 kg

DRUGS (8)
  1. ALEVE (CAPLET) [Suspect]
     Indication: ARTHRALGIA
     Dosage: 220 MG, QD, ORAL
     Route: 048
  2. COUMADIN [Concomitant]
  3. ZOCOR [Concomitant]
  4. ASCORBIC ACID [Concomitant]
  5. VITAMIN E [Concomitant]
  6. LANOXIN [Concomitant]
  7. LASIX [Concomitant]
  8. COZAAR [Concomitant]

REACTIONS (1)
  - HAEMATOCHEZIA [None]
